FAERS Safety Report 22073020 (Version 4)
Quarter: 2023Q4

REPORT INFORMATION
  Report Type: Report from Study
  Country: CA (occurrence: CA)
  Receive Date: 20230308
  Receipt Date: 20231231
  Transmission Date: 20240110
  Serious: Yes (Death, Hospitalization, Other)
  Sender: FDA-Public Use
  Company Number: CA-ABBVIE-4330725

PATIENT
  Sex: Male

DRUGS (6)
  1. VENCLEXTA [Suspect]
     Active Substance: VENETOCLAX
     Indication: Myelodysplastic syndrome
     Route: 048
  2. VENCLEXTA [Suspect]
     Active Substance: VENETOCLAX
     Indication: Myelodysplastic syndrome
     Dosage: LAST ADMIN DATE- 2022
     Route: 048
     Dates: start: 202202
  3. VENCLEXTA [Suspect]
     Active Substance: VENETOCLAX
     Indication: Myelodysplastic syndrome
     Route: 048
     Dates: start: 2023, end: 20230302
  4. VENCLEXTA [Suspect]
     Active Substance: VENETOCLAX
     Indication: Myelodysplastic syndrome
     Route: 048
     Dates: start: 2023, end: 2023
  5. VENCLEXTA [Suspect]
     Active Substance: VENETOCLAX
     Indication: Myelodysplastic syndrome
     Dosage: LAST ADMIN DATE- 2023
     Route: 048
     Dates: start: 20230215
  6. AZACITIDINE [Concomitant]
     Active Substance: AZACITIDINE
     Indication: Product used for unknown indication
     Dates: start: 20230215

REACTIONS (8)
  - Death [Fatal]
  - Therapeutic product effect incomplete [Unknown]
  - Off label use [Unknown]
  - Dizziness [Unknown]
  - Body temperature increased [Unknown]
  - Asthenia [Unknown]
  - Sepsis [Unknown]
  - Bile duct stent insertion [Recovering/Resolving]

NARRATIVE: CASE EVENT DATE: 20220101
